FAERS Safety Report 12746381 (Version 1)
Quarter: 2016Q3

REPORT INFORMATION
  Report Type: Spontaneous
  Country: US (occurrence: US)
  Receive Date: 20160915
  Receipt Date: 20160915
  Transmission Date: 20161109
  Serious: Yes (Other)
  Sender: FDA-Public Use
  Company Number: None

PATIENT
  Age: 61 Year
  Sex: Male
  Weight: 68.04 kg

DRUGS (4)
  1. LEVITRA [Suspect]
     Active Substance: VARDENAFIL HYDROCHLORIDE TRIHYDRATE
     Indication: ERECTILE DYSFUNCTION
     Route: 048
     Dates: start: 20160826, end: 20160826
  2. VITAMIN D [Concomitant]
     Active Substance: CHOLECALCIFEROL
  3. FISH OIL [Concomitant]
     Active Substance: FISH OIL
  4. ASA [Concomitant]
     Active Substance: ASPIRIN

REACTIONS (4)
  - Headache [None]
  - Heart rate increased [None]
  - Arrhythmia [None]
  - Palpitations [None]

NARRATIVE: CASE EVENT DATE: 20160827
